FAERS Safety Report 18796194 (Version 9)
Quarter: 2025Q2

REPORT INFORMATION
  Report Type: Spontaneous
  Country: US (occurrence: US)
  Receive Date: 20210127
  Receipt Date: 20250521
  Transmission Date: 20250717
  Serious: Yes (Other)
  Sender: PFIZER
  Company Number: US-PFIZER INC-2021078423

PATIENT
  Age: 70 Year
  Sex: Female

DRUGS (10)
  1. XELJANZ XR [Suspect]
     Active Substance: TOFACITINIB CITRATE
     Indication: Rheumatoid arthritis
     Dosage: 11 MG, 1X/DAY
     Route: 048
  2. AMLODIPINE [Concomitant]
     Active Substance: AMLODIPINE BESYLATE
  3. ACETAMINOPHEN [Concomitant]
     Active Substance: ACETAMINOPHEN
  4. FAMOTIDINE [Concomitant]
     Active Substance: FAMOTIDINE
  5. KETOCONAZOLE [Concomitant]
     Active Substance: KETOCONAZOLE
  6. LOSARTAN [Concomitant]
     Active Substance: LOSARTAN
  7. METOPROLOL [Concomitant]
     Active Substance: METOPROLOL
  8. NAPROXEN [Concomitant]
     Active Substance: NAPROXEN
  9. OLANZAPINE [Concomitant]
     Active Substance: OLANZAPINE
  10. XARELTO [Concomitant]
     Active Substance: RIVAROXABAN

REACTIONS (11)
  - Ear discomfort [Unknown]
  - Otorrhoea [Unknown]
  - Dizziness [Unknown]
  - Fungal foot infection [Not Recovered/Not Resolved]
  - Posture abnormal [Unknown]
  - Bone disorder [Unknown]
  - Cough [Unknown]
  - Vitamin D decreased [Unknown]
  - Cardiac murmur [Unknown]
  - Dry eye [Unknown]
  - Herpes zoster [Unknown]
